FAERS Safety Report 24744292 (Version 1)
Quarter: 2024Q4

REPORT INFORMATION
  Report Type: Spontaneous
  Country: US (occurrence: None)
  Receive Date: 20241216
  Receipt Date: 20241216
  Transmission Date: 20250115
  Serious: Yes (Hospitalization)
  Sender: Public
  Company Number: None

PATIENT
  Age: 69 Year
  Sex: Female
  Weight: 90 kg

DRUGS (6)
  1. CEFEPIME [Suspect]
     Active Substance: CEFEPIME HYDROCHLORIDE
     Dosage: FREQUENCY : TWICE A DAY;?
     Route: 042
     Dates: start: 20240901, end: 20240924
  2. DAPTOMYCIN [Suspect]
     Active Substance: DAPTOMYCIN
     Dosage: FREQUENCY : DAILY;?
     Route: 042
     Dates: start: 20240901, end: 20240924
  3. METRONIDAZOLE [Suspect]
     Active Substance: METRONIDAZOLE
  4. TIRZEPATIDE [Suspect]
     Active Substance: TIRZEPATIDE
  5. cefepime 2gm ivpb q12h [Concomitant]
  6. daptomycin 631mg ivpb q24h [Concomitant]

REACTIONS (6)
  - Acute kidney injury [None]
  - Chronic kidney disease [None]
  - Renal tubular necrosis [None]
  - Encephalopathy [None]
  - Drug intolerance [None]
  - Blood creatinine increased [None]

NARRATIVE: CASE EVENT DATE: 20240924
